FAERS Safety Report 23501047 (Version 4)
Quarter: 2024Q2

REPORT INFORMATION
  Report Type: Spontaneous
  Country: US (occurrence: US)
  Receive Date: 20240208
  Receipt Date: 20240426
  Transmission Date: 20240716
  Serious: No
  Sender: FDA-Public Use
  Company Number: US-BRISTOL-MYERS SQUIBB COMPANY-2024-020798

PATIENT
  Age: 74 Year
  Sex: Female

DRUGS (2)
  1. POMALYST [Suspect]
     Active Substance: POMALIDOMIDE
     Indication: Plasma cell myeloma
     Route: 048
     Dates: start: 20240124
  2. POMALYST [Suspect]
     Active Substance: POMALIDOMIDE
     Dates: start: 20240124

REACTIONS (3)
  - Rash morbilliform [Recovered/Resolved]
  - Off label use [Unknown]
  - Muscle spasms [Unknown]

NARRATIVE: CASE EVENT DATE: 20240124
